FAERS Safety Report 5487814-4 (Version None)
Quarter: 2007Q3

REPORT INFORMATION
  Report Type: 
  Country: None (occurrence: None)
  Receive Date: 20070925
  Receipt Date: 20070817
  Transmission Date: 20080115
  Serious: No
  Sender: FDA-Public Use
  Company Number: 2007US002001

PATIENT
  Age: 51 Year
  Sex: Female

DRUGS (17)
  1. VESICARE [Suspect]
     Indication: BLADDER DISORDER
     Dosage: 5 MG, ORAL
     Route: 048
     Dates: start: 20070808
  2. METHADONE [Concomitant]
  3. ACTONEL [Concomitant]
  4. PREVACID (LALNSOPRAZOLE) [Concomitant]
  5. ZOLOFT [Concomitant]
  6. PREDNISONE TAB [Concomitant]
  7. DOXYCYCLINE (DOXYCYCLINE HYCLATE) [Concomitant]
  8. METHOTREXATE [Concomitant]
  9. PHENERGAN (PROMETHAZINE HYDROCHLORIDE) [Concomitant]
  10. VERAPAMIL (VERAPAMIL HYDROCHLORIDE) [Concomitant]
  11. HYDROMORPHONE HCL [Concomitant]
  12. ELAVIL [Concomitant]
  13. ZANAFLEX [Concomitant]
  14. MIDRIN (ISOMETHEPTENE, DICHLORALPHENAZONE) [Concomitant]
  15. OXYCODONE HCL [Concomitant]
  16. VITAMINS [Concomitant]
  17. FOLIC ACID [Concomitant]

REACTIONS (5)
  - CHILLS [None]
  - FEELING HOT [None]
  - FLUSHING [None]
  - PANIC ATTACK [None]
  - RESTLESSNESS [None]
